FAERS Safety Report 9845559 (Version 1)
Quarter: 2013Q4

REPORT INFORMATION
  Report Type: Spontaneous
  Country: US (occurrence: None)
  Receive Date: 20131219
  Receipt Date: 20131219
  Transmission Date: 20140711
  Serious: Yes (Other)
  Sender: FDA-Public Use
  Company Number: 163-20785-13092214

PATIENT
  Age: 67 Year
  Sex: Female
  Weight: 59.9 kg

DRUGS (8)
  1. THALOMID (THALIDOMIDE) (50 MILLIGRAM, CAPSULES) [Suspect]
     Indication: PLASMA CELL MYELOMA
     Dosage: 200 MG, 1 IN 1 D, PO 01/2002-PERMANENTLY DISCONTINUED ( THERAPY DATES)
     Dates: start: 200201
  2. PAXIL (PAROXETINE HYDROCHLORIDE) [Concomitant]
  3. POTASSIUM CL ER (POTASSIUM) [Concomitant]
  4. OMEPRAZOLE (OMEPRAZOLE) [Concomitant]
  5. PROAIR HFA (SALBUTAMOL SULFATE) [Concomitant]
  6. CENTRUM SILVER (CENTRUM SILVER) [Concomitant]
  7. SYNTHROID (LEVOTHYROID SODIUM) [Concomitant]
  8. SIMVASTATIN (SIMVASTATIN) [Concomitant]

REACTIONS (4)
  - Loss of consciousness [None]
  - Feeling abnormal [None]
  - Nervousness [None]
  - Tremor [None]
